FAERS Safety Report 22132741 (Version 1)
Quarter: 2023Q1

REPORT INFORMATION
  Report Type: Report from Study
  Country: US (occurrence: US)
  Receive Date: 20230323
  Receipt Date: 20230323
  Transmission Date: 20230418
  Serious: Yes (Other)
  Sender: FDA-Public Use
  Company Number: US-JAZZ PHARMACEUTICALS-2023-US-006739

PATIENT
  Sex: Female

DRUGS (1)
  1. XYREM [Suspect]
     Active Substance: SODIUM OXYBATE
     Indication: Narcolepsy
     Dosage: UNK
     Dates: start: 202211

REACTIONS (4)
  - Oral surgery [Unknown]
  - Trismus [Not Recovered/Not Resolved]
  - Jaw disorder [Not Recovered/Not Resolved]
  - Feeling cold [Not Recovered/Not Resolved]
